FAERS Safety Report 14442000 (Version 22)
Quarter: 2019Q2

REPORT INFORMATION
  Report Type: Report from Study
  Country: DE (occurrence: DE)
  Receive Date: 20180125
  Receipt Date: 20190515
  Transmission Date: 20190711
  Serious: Yes (Hospitalization)
  Sender: FDA-Public Use
  Company Number: DE-PFIZER INC-2018029391

PATIENT
  Age: 62 Year
  Sex: Male
  Weight: 70 kg

DRUGS (19)
  1. OXALIPLATIN. [Suspect]
     Active Substance: OXALIPLATIN
     Indication: COLORECTAL CANCER METASTATIC
     Dosage: 153.85 MG, EVERY 2 WEEKS
     Route: 042
     Dates: start: 20151228, end: 20160509
  2. PEGYLATED LIPOSOMAL IRINOTECAN [Suspect]
     Active Substance: IRINOTECAN HYDROCHLORIDE
     Indication: COLORECTAL CANCER METASTATIC
     Dosage: 298.65 MG, EVERY 2 WEEKS
     Route: 042
     Dates: start: 20151228, end: 20161107
  3. AVASTIN [Suspect]
     Active Substance: BEVACIZUMAB
     Dosage: 350 MG, EVERY 2 WEEKS
     Route: 042
     Dates: start: 20161024
  4. 5-FLUOROURACIL [Suspect]
     Active Substance: FLUOROURACIL
     Indication: COLORECTAL CANCER METASTATIC
     Dosage: 4344-5792 MG, EVERY 2 WEEKS
     Route: 040
     Dates: start: 20151228, end: 20160511
  5. OXALIPLATIN. [Suspect]
     Active Substance: OXALIPLATIN
     Dosage: 123.76 MG, WEEKLY
     Route: 042
     Dates: start: 20160509, end: 20160815
  6. CALCIUM FOLINATE [Suspect]
     Active Substance: LEUCOVORIN CALCIUM
     Indication: COLORECTAL CANCER
     Dosage: 362-364 MG, EVERY 2 WEEKS
     Route: 042
     Dates: start: 20151228, end: 20161107
  7. PEGYLATED LIPOSOMAL IRINOTECAN [Suspect]
     Active Substance: IRINOTECAN HYDROCHLORIDE
     Dosage: 326 MG, EVERY 2 WEEKS
     Route: 042
     Dates: start: 20161107
  8. ONDANSETRON [Concomitant]
     Active Substance: ONDANSETRON
     Indication: NAUSEA
     Dosage: 6 MG, 1X/DAY
     Route: 042
     Dates: start: 20151228
  9. DEXAMETHASON [Concomitant]
     Active Substance: DEXAMETHASONE
     Indication: NAUSEA
     Dosage: 8 MG, BEFORE CHEMOTHERAPY
     Route: 042
     Dates: start: 20151228
  10. AVASTIN [Suspect]
     Active Substance: BEVACIZUMAB
     Dosage: 355 MG, EVERY 2 WEEKS
     Route: 042
     Dates: start: 20060404, end: 20161024
  11. 5-FLUOROURACIL [Suspect]
     Active Substance: FLUOROURACIL
     Dosage: UNK
     Route: 040
     Dates: start: 20160511
  12. ONDANSETRON [Concomitant]
     Active Substance: ONDANSETRON
     Dosage: 8 MG, 1X/DAY
     Route: 042
     Dates: start: 20151223
  13. BISOPROLOL [Concomitant]
     Active Substance: BISOPROLOL
     Indication: HYPERTENSION
     Dosage: 5 MG, 1X/DAY
     Route: 048
  14. OXALIPLATIN. [Suspect]
     Active Substance: OXALIPLATIN
     Dosage: 244 MG, WEEKLY (122 MG, Q2W)
     Route: 042
     Dates: start: 20160509, end: 20160815
  15. OXALIPLATIN. [Suspect]
     Active Substance: OXALIPLATIN
     Dosage: 244 MG, WEEKLY (123.76 MG, Q2W)
     Route: 042
     Dates: start: 20160815
  16. PANTOPRAZOL [Concomitant]
     Active Substance: PANTOPRAZOLE SODIUM
     Dosage: 40 MG, 1X/DAY
     Route: 048
     Dates: start: 20160619
  17. 5-FLUOROURACIL [Suspect]
     Active Substance: FLUOROURACIL
     Dosage: 724 MG, EVERY 2 WEEKS (4344-5792 MG)
     Route: 040
     Dates: start: 20160829, end: 20161107
  18. PEGFILGRASTIM [Suspect]
     Active Substance: PEGFILGRASTIM
     Indication: NEUTROPENIA
     Dosage: 6 MG, CYCLIC (EVERY 14 DAYS)
     Route: 042
     Dates: start: 20151228
  19. AVASTIN [Suspect]
     Active Substance: BEVACIZUMAB
     Indication: COLORECTAL CANCER METASTATIC
     Dosage: 350 MG, EVERY 2 WEEKS
     Route: 042
     Dates: start: 20151228, end: 20161024

REACTIONS (2)
  - Perihepatic abscess [Recovered/Resolved]
  - Liver abscess [Recovered/Resolved]

NARRATIVE: CASE EVENT DATE: 20160622
